FAERS Safety Report 9792810 (Version 1)
Quarter: 2014Q1

REPORT INFORMATION
  Report Type: Spontaneous
  Country: US (occurrence: US)
  Receive Date: 20140102
  Receipt Date: 20140102
  Transmission Date: 20141002
  Serious: No
  Sender: FDA-Public Use
  Company Number: US-SA-2013SA114245

PATIENT
  Sex: Female

DRUGS (9)
  1. AUBAGIO [Suspect]
     Indication: MULTIPLE SCLEROSIS
     Dosage: STERNGTH: 7 MG
     Route: 048
     Dates: start: 201307
  2. COPAXONE [Concomitant]
  3. GILENYA [Concomitant]
  4. AVONEX [Concomitant]
  5. TYSABRI [Concomitant]
  6. REBIF [Concomitant]
  7. NEURONTIN [Concomitant]
  8. ADDERALL [Concomitant]
  9. WELLBUTRIN [Concomitant]

REACTIONS (1)
  - Diarrhoea [Recovered/Resolved]
